FAERS Safety Report 7099760-3 (Version None)
Quarter: 2010Q4

REPORT INFORMATION
  Report Type: 
  Country: None (occurrence: None)
  Receive Date: 20101104
  Receipt Date: 20101025
  Transmission Date: 20110411
  Serious: Yes (Death, Hospitalization)
  Sender: FDA-Public Use
  Company Number: 2009AC000312

PATIENT
  Age: 79 Year
  Sex: Female

DRUGS (18)
  1. DIGOXIN [Suspect]
     Dates: start: 20050101
  2. DIGOXIN [Suspect]
     Dosage: 0.250 MG;QD;PO
     Route: 048
     Dates: start: 20010501, end: 20071001
  3. *HYDROCODONE [Concomitant]
  4. CYMBALTA [Concomitant]
  5. WARFARIN [Concomitant]
  6. GABAPENTIN [Concomitant]
  7. LASIX [Concomitant]
  8. LORAZEPAM [Concomitant]
  9. LOVASTATIN [Concomitant]
  10. KLOR-CO [Concomitant]
  11. MECLIZINE [Concomitant]
  12. TRAZODONE [Concomitant]
  13. TEMAZEPAM [Concomitant]
  14. ASPIRIN [Concomitant]
  15. ROCEPHIN [Concomitant]
  16. NORVAS [Concomitant]
  17. TYLENOL [Concomitant]
  18. DILAUDID [Concomitant]

REACTIONS (18)
  - AGITATION [None]
  - ALTERED STATE OF CONSCIOUSNESS [None]
  - CARDIO-RESPIRATORY ARREST [None]
  - CEREBROVASCULAR ACCIDENT [None]
  - DILATATION ATRIAL [None]
  - DILATATION VENTRICULAR [None]
  - DIVERTICULUM [None]
  - DIZZINESS [None]
  - DYSARTHRIA [None]
  - ECONOMIC PROBLEM [None]
  - FALL [None]
  - LUMBAR SPINAL STENOSIS [None]
  - MENTAL STATUS CHANGES [None]
  - MITRAL VALVE INCOMPETENCE [None]
  - MULTIPLE INJURIES [None]
  - TRICUSPID VALVE INCOMPETENCE [None]
  - VENTRICULAR EXTRASYSTOLES [None]
  - VENTRICULAR HYPOKINESIA [None]
